FAERS Safety Report 4938898-0 (Version None)
Quarter: 2006Q1

REPORT INFORMATION
  Report Type: 
  Country: None (occurrence: None)
  Receive Date: 20060309
  Receipt Date: 20060227
  Transmission Date: 20060701
  Serious: Yes (Death)
  Sender: FDA-Public Use
  Company Number: US-MERCK-0602USA05950

PATIENT
  Age: 78 Year
  Sex: Female
  Weight: 55 kg

DRUGS (9)
  1. VIOXX [Suspect]
     Indication: ARTHRALGIA
     Route: 048
     Dates: start: 20000101, end: 20040801
  2. SYNTHROID [Concomitant]
     Route: 065
  3. PROTONIX [Concomitant]
     Route: 065
  4. FIORICET TABLETS [Concomitant]
     Route: 065
  5. AMBIEN [Concomitant]
     Route: 065
  6. QUININE [Concomitant]
     Route: 065
  7. LASIX [Concomitant]
     Route: 065
  8. WARFARIN [Concomitant]
     Route: 065
  9. ATENOLOL [Concomitant]
     Route: 065

REACTIONS (3)
  - CARDIAC ARREST [None]
  - RENAL FAILURE ACUTE [None]
  - RENAL FAILURE CHRONIC [None]
